FAERS Safety Report 14656538 (Version 4)
Quarter: 2019Q2

REPORT INFORMATION
  Report Type: Spontaneous
  Country: US (occurrence: US)
  Receive Date: 20180319
  Receipt Date: 20190508
  Transmission Date: 20190711
  Serious: No
  Sender: FDA-Public Use
  Company Number: US-PFIZER INC-2018112557

PATIENT
  Age: 83 Year
  Sex: Female
  Weight: 63.49 kg

DRUGS (2)
  1. LYRICA [Suspect]
     Active Substance: PREGABALIN
     Dosage: 75 MG, 3X/DAY
     Route: 048
  2. LYRICA [Suspect]
     Active Substance: PREGABALIN
     Indication: MYOPATHY
     Dosage: 50 MG, UNK

REACTIONS (9)
  - Withdrawal syndrome [Recovering/Resolving]
  - Weight decreased [Not Recovered/Not Resolved]
  - Night sweats [Recovering/Resolving]
  - Fatigue [Recovering/Resolving]
  - Anxiety [Not Recovered/Not Resolved]
  - Dehydration [Not Recovered/Not Resolved]
  - Insomnia [Unknown]
  - Blood pressure increased [Recovered/Resolved]
  - Movement disorder [Unknown]

NARRATIVE: CASE EVENT DATE: 201803
